FAERS Safety Report 6529457-7 (Version None)
Quarter: 2010Q1

REPORT INFORMATION
  Report Type: 
  Country: None (occurrence: None)
  Receive Date: 20100104
  Receipt Date: 20091222
  Transmission Date: 20100710
  Serious: Yes (Life-Threatening, Hospitalization, Other)
  Sender: FDA-Public Use
  Company Number: AE-2009-326

PATIENT
  Age: 39 Year
  Sex: Male

DRUGS (10)
  1. METFORMIN HCL [Suspect]
     Dosage: 6500MG
  2. ASPIRIN [Suspect]
     Dosage: 975MG, ORAL
     Route: 048
  3. AMLODIPINE [Suspect]
     Dosage: 280MG, ORAL
     Route: 048
  4. DOXAZOSIN MESYLATE [Suspect]
     Dosage: 112MG, ORAL
     Route: 048
  5. ADRENALINE [Concomitant]
  6. CALCIUM [Concomitant]
  7. DEXTROSE [Concomitant]
  8. NORADRENALINE [Concomitant]
  9. POTASSIUM [Concomitant]
  10. INSULIN [Concomitant]

REACTIONS (6)
  - CARDIOTOXICITY [None]
  - DRUG TOXICITY [None]
  - HAEMODIALYSIS [None]
  - HYPERKALAEMIA [None]
  - HYPOGLYCAEMIA [None]
  - HYPOTENSION [None]
